FAERS Safety Report 4818070-5 (Version None)
Quarter: 2005Q4

REPORT INFORMATION
  Report Type: 
  Country: None (occurrence: None)
  Receive Date: 20051102
  Receipt Date: 20050810
  Transmission Date: 20060501
  Serious: Yes (Hospitalization, Other)
  Sender: FDA-Public Use
  Company Number: US-GLAXOSMITHKLINE-A0569717A

PATIENT
  Age: 70 Year
  Sex: Male

DRUGS (8)
  1. FLOVENT [Suspect]
     Indication: DRUG USE FOR UNKNOWN INDICATION
     Dosage: 2PUFF TWICE PER DAY
     Route: 055
     Dates: start: 20010801
  2. COMBIVENT [Concomitant]
  3. TOPROL-XL [Concomitant]
  4. FLOPROPIONE [Concomitant]
  5. ALLOPURINOL [Concomitant]
  6. WELCHOL [Concomitant]
  7. ASPIRIN [Concomitant]
  8. OSTEOBIFLEX [Concomitant]

REACTIONS (7)
  - CARDIAC ENZYMES INCREASED [None]
  - CHEST PAIN [None]
  - CHRONIC OBSTRUCTIVE PULMONARY DISEASE [None]
  - DYSPNOEA [None]
  - FATIGUE [None]
  - FEELING ABNORMAL [None]
  - PHARMACEUTICAL PRODUCT COMPLAINT [None]
